FAERS Safety Report 16217679 (Version 3)
Quarter: 2020Q2

REPORT INFORMATION
  Report Type: Spontaneous
  Country: US (occurrence: US)
  Receive Date: 20190419
  Receipt Date: 20200616
  Transmission Date: 20200713
  Serious: No
  Sender: FDA-Public Use
  Company Number: US-SA-2019SA108223

PATIENT

DRUGS (1)
  1. DUPIXENT [Suspect]
     Active Substance: DUPILUMAB
     Indication: ECZEMA
     Dosage: 300 UNK,FREQUENCY AS OTHER AND DOSE UNITS NOT SPECIFIED
     Route: 058
     Dates: start: 201807

REACTIONS (4)
  - Product dose omission [Unknown]
  - Product dose omission [Unknown]
  - Treatment noncompliance [Unknown]
  - Eczema [Unknown]

NARRATIVE: CASE EVENT DATE: 2019
